FAERS Safety Report 8477244-5 (Version None)
Quarter: 2012Q2

REPORT INFORMATION
  Report Type: 
  Country: None (occurrence: None)
  Receive Date: 20120619
  Receipt Date: 20120607
  Transmission Date: 20120825
  Serious: Yes (Hospitalization, Other)
  Sender: FDA-Public Use
  Company Number: DSA_55124_2012

PATIENT
  Age: 62 Year
  Sex: Male

DRUGS (4)
  1. DILTIAZEM HYDROCHLORIDE [Suspect]
     Indication: PRODUCT USED FOR UNKNOWN INDICATION
     Dosage: (240 MG QD)
  2. TACROLIMUS [Suspect]
     Indication: RENAL TRANSPLANT
     Dosage: (DF)
  3. PREDNISONE [Concomitant]
  4. ENALAPRIL MALEATE [Concomitant]

REACTIONS (10)
  - SINUS BRADYCARDIA [None]
  - DRUG INTERACTION [None]
  - FATIGUE [None]
  - NAUSEA [None]
  - RENAL FAILURE ACUTE [None]
  - DIZZINESS [None]
  - DECREASED APPETITE [None]
  - TREMOR [None]
  - LETHARGY [None]
  - TOXICITY TO VARIOUS AGENTS [None]
